FAERS Safety Report 6243516-8 (Version None)
Quarter: 2009Q2

REPORT INFORMATION
  Report Type: 
  Country: None (occurrence: None)
  Receive Date: 20090624
  Receipt Date: 20090217
  Transmission Date: 20091009
  Serious: Yes (Other)
  Sender: FDA-Public Use
  Company Number: PHHY2008FR25788

PATIENT
  Sex: Female
  Weight: 44 kg

DRUGS (5)
  1. ZOMETA [Suspect]
     Indication: METASTASES TO BONE
     Dosage: 4 MG, QMO
     Dates: start: 20030611, end: 20031014
  2. ZOMETA [Suspect]
     Dosage: 4 MG, QMO
     Dates: start: 20071204, end: 20080819
  3. AREDIA [Suspect]
     Indication: METASTASES TO BONE
  4. LYTOS [Suspect]
     Dosage: UNK
     Route: 048
     Dates: start: 20031015, end: 20070716
  5. CAELYX [Concomitant]
     Dosage: 50 MGM^2
     Route: 042

REACTIONS (4)
  - IMPAIRED HEALING [None]
  - MASTICATION DISORDER [None]
  - OSTEONECROSIS [None]
  - TOOTH LOSS [None]
